FAERS Safety Report 14321248 (Version 1)
Quarter: 2017Q4

REPORT INFORMATION
  Report Type: Spontaneous
  Country: FR (occurrence: FR)
  Receive Date: 20171223
  Receipt Date: 20171223
  Transmission Date: 20180321
  Serious: Yes (Other)
  Sender: FDA-Public Use
  Company Number: FR-CIPLA LTD.-2017FR24648

PATIENT

DRUGS (8)
  1. CELECOXIB. [Suspect]
     Active Substance: CELECOXIB
     Indication: METASTASES TO MENINGES
     Dosage: 400 MG, DAY 1; CONTINUOUS ; CYCLICAL
     Route: 048
     Dates: start: 201604
  2. DOXORUBICIN [Concomitant]
     Active Substance: DOXORUBICIN
     Indication: ATYPICAL TERATOID/RHABDOID TUMOUR OF CNS
     Dosage: UNK
     Route: 065
     Dates: start: 201510
  3. CYCLOPHOSPHAMIDE. [Suspect]
     Active Substance: CYCLOPHOSPHAMIDE
     Indication: METASTASES TO MENINGES
     Dosage: 2.5 MG/KG, ALTERNATING 21 DAY CYCLES ; CYCLICAL
     Route: 048
     Dates: start: 201604
  4. VINCRISTINE [Concomitant]
     Active Substance: VINCRISTINE
     Indication: ATYPICAL TERATOID/RHABDOID TUMOUR OF CNS
     Dosage: UNK
     Route: 065
     Dates: start: 201510
  5. CISPLATIN. [Concomitant]
     Active Substance: CISPLATIN
     Dosage: UNK
     Route: 065
     Dates: start: 201512
  6. CYTARABINE. [Suspect]
     Active Substance: CYTARABINE
     Indication: METASTASES TO MENINGES
     Dosage: 35 MG, LIPOSOMAL CYTARABINE 35 MG INTRATHECAL DAY 1 ; CYCLICAL
     Route: 039
     Dates: start: 201604
  7. IFOSFAMIDE. [Concomitant]
     Active Substance: IFOSFAMIDE
     Dosage: UNK
     Route: 065
     Dates: start: 201212
  8. ETOPOSIDE. [Concomitant]
     Active Substance: ETOPOSIDE
     Dosage: UNK
     Route: 065
     Dates: start: 201512

REACTIONS (6)
  - Disease progression [Unknown]
  - Neutropenia [Unknown]
  - Asthenia [Unknown]
  - Toxicity to various agents [Unknown]
  - Influenza [Unknown]
  - Injection site reaction [Unknown]
